FAERS Safety Report 5337333-0 (Version None)
Quarter: 2007Q2

REPORT INFORMATION
  Report Type: 
  Country: None (occurrence: None)
  Receive Date: 20070529
  Receipt Date: 20070517
  Transmission Date: 20071010
  Serious: Yes (Hospitalization)
  Sender: FDA-Public Use
  Company Number: JP-SHR-JP-2007-018416

PATIENT
  Age: 58 Year
  Sex: Male

DRUGS (2)
  1. SOTALOL HYDROCHLORIDE [Suspect]
     Indication: VENTRICULAR TACHYCARDIA
     Dosage: 40 MG, 2X/DAY
     Route: 048
     Dates: start: 20070115, end: 20070501
  2. AMIODARONE HCL [Concomitant]

REACTIONS (1)
  - INTERSTITIAL LUNG DISEASE [None]
